FAERS Safety Report 5717663-0 (Version None)
Quarter: 2008Q2

REPORT INFORMATION
  Report Type: 
  Country: None (occurrence: None)
  Receive Date: 20080425
  Receipt Date: 20080422
  Transmission Date: 20081010
  Serious: Yes (Other)
  Sender: FDA-Public Use
  Company Number: AU-TEVA-170571USA

PATIENT
  Sex: Female

DRUGS (3)
  1. PIMOZIDE TABLETS [Suspect]
     Route: 048
  2. CORTISONE [Suspect]
  3. CARBAMAZEPINE [Concomitant]

REACTIONS (5)
  - DEPRESSION [None]
  - INSOMNIA [None]
  - PHARMACEUTICAL PRODUCT COMPLAINT [None]
  - PSYCHOMOTOR HYPERACTIVITY [None]
  - SUICIDAL IDEATION [None]
